FAERS Safety Report 6880234-7 (Version None)
Quarter: 2010Q3

REPORT INFORMATION
  Report Type: 
  Country: None (occurrence: None)
  Receive Date: 20100728
  Receipt Date: 20100720
  Transmission Date: 20110219
  Serious: Yes (Other)
  Sender: FDA-Public Use
  Company Number: US-SANOFI-AVENTIS-2010SA042303

PATIENT
  Age: 47 Year
  Sex: Female

DRUGS (2)
  1. LANTUS [Suspect]
     Indication: TYPE 2 DIABETES MELLITUS
     Dosage: STOPPED 2-3 WEEKS AGO; RAN OUT OF THE INSULIN DOSE:80 UNIT(S)
     Route: 058
     Dates: start: 20030101
  2. NOVOLOG [Concomitant]

REACTIONS (1)
  - CORONARY ARTERY OCCLUSION [None]
